FAERS Safety Report 10708035 (Version 2)
Quarter: 2015Q2

REPORT INFORMATION
  Report Type: Spontaneous
  Country: US (occurrence: US)
  Receive Date: 20150113
  Receipt Date: 20150401
  Transmission Date: 20150821
  Serious: No
  Sender: FDA-Public Use
  Company Number: US-PFIZER INC-2015009708

PATIENT
  Age: 11 Year
  Sex: Male
  Weight: 23 kg

DRUGS (2)
  1. GENOTROPIN [Suspect]
     Active Substance: SOMATROPIN
     Indication: GROWTH HORMONE DEFICIENCY
     Dosage: 5 MG, 1X/DAY
     Dates: start: 201411
  2. VYVANSE [Concomitant]
     Active Substance: LISDEXAMFETAMINE DIMESYLATE
     Indication: ATTENTION DEFICIT/HYPERACTIVITY DISORDER
     Dosage: 50 MG, 1X/DAY
     Dates: start: 201403

REACTIONS (2)
  - Breast mass [Recovered/Resolved]
  - Nipple pain [Recovered/Resolved]

NARRATIVE: CASE EVENT DATE: 201412
